FAERS Safety Report 9246183 (Version 4)
Quarter: 2013Q4

REPORT INFORMATION
  Report Type: Spontaneous
  Country: US (occurrence: US)
  Receive Date: 20130422
  Receipt Date: 20131227
  Transmission Date: 20140711
  Serious: Yes (Hospitalization, Other)
  Sender: FDA-Public Use
  Company Number: US-009507513-1304USA013295

PATIENT
  Sex: Female
  Weight: 95.24 kg

DRUGS (1)
  1. NUVARING [Suspect]
     Indication: CONTRACEPTION
     Dosage: UNK
     Route: 067
     Dates: start: 200409, end: 20110904

REACTIONS (13)
  - Pulmonary embolism [Recovered/Resolved]
  - Ovarian cyst [Unknown]
  - Hypertension [Unknown]
  - Thyroid disorder [Unknown]
  - Oropharyngeal pain [Unknown]
  - Seasonal allergy [Unknown]
  - Hair disorder [Unknown]
  - Skin disorder [Unknown]
  - Gastrooesophageal reflux disease [Unknown]
  - Vaginal infection [Unknown]
  - Hypoaesthesia [Recovered/Resolved]
  - Chest pain [Recovered/Resolved]
  - Palpitations [Recovered/Resolved]
